FAERS Safety Report 7731147-X (Version None)
Quarter: 2011Q3

REPORT INFORMATION
  Report Type: 
  Country: None (occurrence: None)
  Receive Date: 20110906
  Receipt Date: 20110906
  Transmission Date: 20111222
  Serious: Yes (Hospitalization)
  Sender: FDA-Public Use
  Company Number: None

PATIENT
  Age: 34 Year
  Sex: Female
  Weight: 63.502 kg

DRUGS (3)
  1. NUCYNTA [Suspect]
     Indication: BACK PAIN
     Dosage: 75MG
     Route: 048
     Dates: start: 20110815, end: 20110818
  2. NUCYNTA [Suspect]
     Indication: MUSCULOSKELETAL PAIN
     Dosage: 75MG
     Route: 048
     Dates: start: 20110815, end: 20110818
  3. NUCYNTA [Suspect]
     Indication: PAIN IN EXTREMITY
     Dosage: 75MG
     Route: 048
     Dates: start: 20110815, end: 20110818

REACTIONS (5)
  - SEROTONIN SYNDROME [None]
  - MYALGIA [None]
  - RHABDOMYOLYSIS [None]
  - FATIGUE [None]
  - CHROMATURIA [None]
